FAERS Safety Report 6144014-2 (Version None)
Quarter: 2009Q2

REPORT INFORMATION
  Report Type: 
  Country: None (occurrence: None)
  Receive Date: 20090406
  Receipt Date: 20090401
  Transmission Date: 20091009
  Serious: Yes (Other)
  Sender: FDA-Public Use
  Company Number: US-BRISTOL-MYERS SQUIBB COMPANY-14570261

PATIENT
  Age: 33 Month
  Sex: Female

DRUGS (2)
  1. ABILIFY [Suspect]
     Indication: DEPRESSION
     Route: 064
  2. LACTULOSE [Concomitant]
     Route: 064

REACTIONS (1)
  - SPEECH DISORDER DEVELOPMENTAL [None]
